FAERS Safety Report 5907679-3 (Version None)
Quarter: 2008Q3

REPORT INFORMATION
  Report Type: 
  Country: None (occurrence: None)
  Receive Date: 20080929
  Receipt Date: 20080915
  Transmission Date: 20090109
  Serious: Yes (Life-Threatening, Hospitalization)
  Sender: FDA-Public Use
  Company Number: 1000001086

PATIENT
  Age: 46 Year
  Sex: Male

DRUGS (6)
  1. ESCITALOPRAM [Suspect]
     Indication: MAJOR DEPRESSION
     Dosage: 20 MG (20 MG, 1 IN 1 D), ORAL
     Route: 048
     Dates: start: 20080201
  2. ZYPREXA [Suspect]
     Indication: MAJOR DEPRESSION
     Dosage: ORAL
     Route: 048
     Dates: start: 20080201
  3. PEGASYS (INJECTION) [Concomitant]
  4. COPEGUS [Concomitant]
  5. NORVIR [Concomitant]
  6. REYATAZ (200 MILLIGRAM) [Concomitant]

REACTIONS (2)
  - COMA [None]
  - GRAND MAL CONVULSION [None]
